FAERS Safety Report 20822594 (Version 1)
Quarter: 2022Q2

REPORT INFORMATION
  Report Type: Spontaneous
  Country: US (occurrence: US)
  Receive Date: 20220512
  Receipt Date: 20220512
  Transmission Date: 20220721
  Serious: No
  Sender: FDA-Public Use
  Company Number: US-BRISTOL-MYERS SQUIBB COMPANY-2022-026861

PATIENT
  Age: 71 Year
  Sex: Male

DRUGS (14)
  1. REVLIMID [Suspect]
     Active Substance: LENALIDOMIDE
     Indication: Plasma cell myeloma
     Dosage: TAKE I CAPSULE (10MG) BY MOUTH DAILY FOR 21 DAYS FOLLOWED BY 7 DAYS OFF
     Route: 048
     Dates: start: 20220322
  2. ELIQUIS [Concomitant]
     Active Substance: APIXABAN
     Indication: Plasma cell myeloma
  3. ELIQUIS [Concomitant]
     Active Substance: APIXABAN
  4. POMALYST [Concomitant]
     Active Substance: POMALIDOMIDE
     Indication: Plasma cell myeloma
  5. ACYCLOVIR [Concomitant]
     Active Substance: ACYCLOVIR
     Indication: Plasma cell myeloma
  6. AMLODIPINE\VALSARTAN [Concomitant]
     Active Substance: AMLODIPINE\VALSARTAN
     Indication: Plasma cell myeloma
  7. ATORVASTATIN [Concomitant]
     Active Substance: ATORVASTATIN
     Indication: Plasma cell myeloma
  8. ATORVASTATIN [Concomitant]
     Active Substance: ATORVASTATIN
  9. BASAGLAR [Concomitant]
     Active Substance: INSULIN GLARGINE
     Indication: Plasma cell myeloma
     Dosage: 100 UNIT
  10. LEVOTHYROXINE [Concomitant]
     Active Substance: LEVOTHYROXINE
     Indication: Plasma cell myeloma
  11. LEVOTHYROXINE [Concomitant]
     Active Substance: LEVOTHYROXINE
  12. METOPROLOL [Concomitant]
     Active Substance: METOPROLOL
     Indication: Plasma cell myeloma
  13. METOPROLOL [Concomitant]
     Active Substance: METOPROLOL
  14. VICTOZA [Concomitant]
     Active Substance: LIRAGLUTIDE
     Indication: Plasma cell myeloma
     Dosage: INJECTION - 18MG/3ML

REACTIONS (2)
  - Muscle spasms [Unknown]
  - Muscle spasms [Unknown]
